FAERS Safety Report 24592744 (Version 1)
Quarter: 2024Q4

REPORT INFORMATION
  Report Type: Spontaneous
  Country: US (occurrence: US)
  Receive Date: 20241108
  Receipt Date: 20241108
  Transmission Date: 20250115
  Serious: Yes (Other)
  Sender: MYLAN
  Company Number: US-MYLANLABS-2024M1098664

PATIENT

DRUGS (2)
  1. CITALOPRAM [Suspect]
     Active Substance: CITALOPRAM
     Indication: Maternal-foetal therapy
     Dosage: UNK
     Route: 064
  2. QUETIAPINE [Suspect]
     Active Substance: QUETIAPINE
     Indication: Maternal-foetal therapy
     Dosage: UNK
     Route: 064

REACTIONS (3)
  - Hypertonia [Unknown]
  - Foetal exposure during pregnancy [Unknown]
  - Posture abnormal [Unknown]
